FAERS Safety Report 5745428-2 (Version None)
Quarter: 2008Q2

REPORT INFORMATION
  Report Type: 
  Country: None (occurrence: None)
  Receive Date: 20080521
  Receipt Date: 20080514
  Transmission Date: 20081010
  Serious: Yes (Other)
  Sender: FDA-Public Use
  Company Number: GB-AVENTIS-200814557GDDC

PATIENT
  Age: 70 Year
  Sex: Female

DRUGS (8)
  1. DOCETAXEL [Suspect]
     Route: 042
  2. DOCETAXEL [Suspect]
  3. ONDANSETRON [Concomitant]
  4. DOMPERIDONE [Concomitant]
  5. LOPERAMIDE HCL [Concomitant]
  6. DEXAMETHASONE TAB [Concomitant]
  7. CYCLIZINE [Concomitant]
  8. EMEND [Concomitant]

REACTIONS (2)
  - CARDIOTOXICITY [None]
  - CIRCULATORY COLLAPSE [None]
